FAERS Safety Report 21194902 (Version 1)
Quarter: 2022Q3

REPORT INFORMATION
  Report Type: Spontaneous
  Country: AT (occurrence: AT)
  Receive Date: 20220810
  Receipt Date: 20220810
  Transmission Date: 20221027
  Serious: Yes (Hospitalization)
  Sender: FDA-Public Use
  Company Number: AT-NOVARTISPH-NVSC2022AT179192

PATIENT
  Sex: Male

DRUGS (2)
  1. METHOTREXATE SODIUM [Suspect]
     Active Substance: METHOTREXATE SODIUM
     Indication: Product used for unknown indication
     Dosage: UNK
     Route: 065
  2. HUMIRA [Suspect]
     Active Substance: ADALIMUMAB
     Indication: Rheumatoid arthritis
     Dosage: 40 MG, Q4W
     Route: 065
     Dates: start: 2010

REACTIONS (12)
  - Asthenia [Recovered/Resolved]
  - Facial paralysis [Recovered/Resolved]
  - Aneurysm [Recovered/Resolved]
  - Tremor [Recovered/Resolved]
  - Cerebrovascular accident [Unknown]
  - Pneumonia bacterial [Recovered/Resolved]
  - Hemiparesis [Recovered/Resolved]
  - Pneumonia viral [Recovered/Resolved]
  - Blood cholesterol increased [Recovered/Resolved]
  - Asthenia [Recovered/Resolved]
  - Hypertension [Recovered/Resolved]
  - Immunodeficiency [Recovering/Resolving]

NARRATIVE: CASE EVENT DATE: 20170101
